FAERS Safety Report 22088908 (Version 1)
Quarter: 2023Q1

REPORT INFORMATION
  Report Type: Spontaneous
  Country: IR (occurrence: IR)
  Receive Date: 20230313
  Receipt Date: 20230313
  Transmission Date: 20230418
  Serious: Yes (Other)
  Sender: FDA-Public Use
  Company Number: IR-APOTEX-2023AP004798

PATIENT
  Age: 37 Year
  Sex: Male

DRUGS (2)
  1. GABAPENTIN [Suspect]
     Active Substance: GABAPENTIN
     Indication: Product used for unknown indication
     Dosage: 300 MILLIGRAM, 2-3 TIMES A DAY
     Route: 065
  2. GABAPENTIN [Suspect]
     Active Substance: GABAPENTIN
     Dosage: 40 DOSAGE FORM, QD (12 GRAM)
     Route: 065

REACTIONS (25)
  - Drug dependence [Unknown]
  - Toxicity to various agents [Unknown]
  - Asthenia [Unknown]
  - Nervousness [Unknown]
  - Restlessness [Unknown]
  - Flank pain [Unknown]
  - Palpitations [Unknown]
  - Nocturia [Unknown]
  - Irritability [Unknown]
  - Road traffic accident [Unknown]
  - Intentional product misuse [Unknown]
  - Polyuria [Unknown]
  - Movement disorder [Unknown]
  - Diarrhoea [Unknown]
  - Back pain [Unknown]
  - Confusional state [Unknown]
  - Insomnia [Unknown]
  - Ataxia [Unknown]
  - Dizziness [Unknown]
  - Coordination abnormal [Unknown]
  - Somnolence [Unknown]
  - Depression [Unknown]
  - Fatigue [Unknown]
  - Hyperhidrosis [Unknown]
  - Withdrawal syndrome [Unknown]
